FAERS Safety Report 20877140 (Version 3)
Quarter: 2022Q3

REPORT INFORMATION
  Report Type: Spontaneous
  Country: US (occurrence: US)
  Receive Date: 20220526
  Receipt Date: 20220719
  Transmission Date: 20221027
  Serious: No
  Sender: FDA-Public Use
  Company Number: US-BRISTOL-MYERS SQUIBB COMPANY-2022-034492

PATIENT
  Age: 69 Year
  Sex: Female
  Weight: 95.25 kg

DRUGS (2)
  1. REVLIMID [Suspect]
     Active Substance: LENALIDOMIDE
     Indication: Plasma cell myeloma
     Dosage: 1 CAP DAYS 1-14 EVERY 21 DAYS?NEW LOT NUMBER: A3572A WITH NEW EXPIRY DATE 31-JAN-2024
     Route: 048
     Dates: start: 20220428
  2. REVLIMID [Suspect]
     Active Substance: LENALIDOMIDE
     Route: 065

REACTIONS (6)
  - Insomnia [Recovered/Resolved]
  - Back pain [Unknown]
  - Fatigue [Unknown]
  - Asthenia [Unknown]
  - Illness [Unknown]
  - Product dose omission issue [Unknown]

NARRATIVE: CASE EVENT DATE: 20220428
